FAERS Safety Report 20738991 (Version 3)
Quarter: 2022Q2

REPORT INFORMATION
  Report Type: Other
  Country: CA (occurrence: None)
  Receive Date: 20220422
  Receipt Date: 20220608
  Transmission Date: 20220721
  Serious: No
  Sender: FDA-Public Use
  Company Number: CA-ROCHE-3082049

PATIENT
  Sex: Female

DRUGS (5)
  1. OCREVUS [Suspect]
     Active Substance: OCRELIZUMAB
     Indication: Relapsing-remitting multiple sclerosis
     Dosage: 300 MG AT DAY 0 AND 14, THEN 600 MG EVERY 6 MONTH
     Route: 042
     Dates: start: 20200318
  2. TELMISARTAN [Concomitant]
     Active Substance: TELMISARTAN
  3. COVID-19 VACCINE [Concomitant]
     Dosage: JULY 23, 2021, SEPT 16, 2021,?BOOSTER FEBRUARY 2022
  4. TRAMADOL [Concomitant]
     Active Substance: TRAMADOL
  5. GABAPENTIN [Concomitant]
     Active Substance: GABAPENTIN
     Dates: start: 2021

REACTIONS (1)
  - COVID-19 [Recovered/Resolved]
